FAERS Safety Report 8339622-4 (Version None)
Quarter: 2012Q2

REPORT INFORMATION
  Report Type: 
  Country: None (occurrence: None)
  Receive Date: 20120507
  Receipt Date: 20120430
  Transmission Date: 20120825
  Serious: Yes (Hospitalization, Other)
  Sender: FDA-Public Use
  Company Number: US-BAYER-2011-098069

PATIENT
  Age: 39 Year
  Sex: Female
  Weight: 125.17 kg

DRUGS (17)
  1. VITAMIN B6 [Concomitant]
     Indication: IMMUNE SYSTEM DISORDER
  2. CYMBALTA [Concomitant]
     Dosage: 60 MG, DAILY
     Route: 048
  3. FERROUS GLUCONATE [Concomitant]
     Dosage: 325 MG, DAILY
     Route: 048
  4. LASIX [Concomitant]
     Dosage: 20 MG, DAILY
     Route: 048
  5. MOTRIN [Concomitant]
     Indication: PAIN
     Dosage: 800 MG EVERY 6 HOURS AS NEEDED
     Route: 048
  6. VITAMIN D [Concomitant]
     Indication: HYPOVITAMINOSIS
     Dosage: UNK UNK, QD
  7. IRON [Concomitant]
     Indication: BLOOD IRON DECREASED
     Dosage: 325MG
  8. FLEXERIL [Concomitant]
     Indication: MUSCLE SPASMS
     Dosage: 10 MG 3 TIMES DAILY AS NEEDED
     Route: 048
  9. NEXIUM [Concomitant]
     Dosage: 40 MG, DAILY
     Route: 048
  10. REQUIP [Concomitant]
     Dosage: 3 MG DAILY AT BEDTIME
     Route: 048
  11. LAMISIL [Concomitant]
     Dosage: 250 MG, DAILY
     Route: 048
  12. YAZ [Suspect]
     Dosage: UNK
     Route: 048
     Dates: start: 20050101, end: 20100101
  13. ALBUTEROL [Concomitant]
     Dosage: 2 PUFFS EVERY 6 HOURS AS NEEDED INHALANT
  14. VITAMIN B-12 [Concomitant]
  15. HYDROCODONE [Concomitant]
     Indication: PAIN
     Dosage: TID AS NEEDED
     Route: 048
  16. TOPAMAX [Concomitant]
     Dosage: 50 MG TWICE DAILY
     Route: 048
  17. ZOFRAN [Concomitant]
     Dosage: 4 MG EVERY 8 HOURS AS NEEDED
     Route: 048

REACTIONS (7)
  - PULMONARY EMBOLISM [None]
  - GALLBLADDER DISORDER [None]
  - INJURY [None]
  - THROMBOSIS [None]
  - CHEST PAIN [None]
  - CHOLECYSTITIS CHRONIC [None]
  - PAIN [None]
